FAERS Safety Report 10624898 (Version 1)
Quarter: 2014Q4

REPORT INFORMATION
  Report Type: Spontaneous
  Country: US (occurrence: US)
  Receive Date: 20141204
  Receipt Date: 20141204
  Transmission Date: 20150529
  Serious: No
  Sender: FDA-Public Use
  Company Number: US-ASTRAZENECA-2014SE86181

PATIENT
  Age: 22939 Day
  Sex: Female
  Weight: 68.9 kg

DRUGS (5)
  1. VITAMIN B12 [Concomitant]
     Active Substance: CYANOCOBALAMIN
     Indication: PERNICIOUS ANAEMIA
     Route: 058
  2. CRESTOR [Suspect]
     Active Substance: ROSUVASTATIN CALCIUM
     Indication: BLOOD CHOLESTEROL INCREASED
     Route: 048
     Dates: start: 20140712, end: 20141103
  3. SYNTHROID [Concomitant]
     Active Substance: LEVOTHYROXINE SODIUM
     Indication: THYROID DISORDER
     Route: 048
     Dates: start: 1980
  4. PRISTIQ EXTENDED RELEASE [Concomitant]
     Active Substance: DESVENLAFAXINE SUCCINATE
     Indication: DEPRESSION
     Route: 048
     Dates: start: 2012
  5. ATIVAN [Concomitant]
     Active Substance: LORAZEPAM
     Indication: TREMOR
     Route: 048
     Dates: start: 20140822

REACTIONS (18)
  - Nausea [Unknown]
  - Tremor [Unknown]
  - Sleep disorder [Unknown]
  - Muscle spasms [Unknown]
  - Pain [Unknown]
  - Weight decreased [Unknown]
  - Dysgraphia [Unknown]
  - Gait disturbance [Unknown]
  - Fatigue [Unknown]
  - Muscular weakness [Unknown]
  - Asthenia [Unknown]
  - Myalgia [Unknown]
  - Cognitive disorder [Unknown]
  - Memory impairment [Unknown]
  - Pyrexia [Unknown]
  - Depression [Unknown]
  - Decreased appetite [Unknown]
  - Mobility decreased [Unknown]

NARRATIVE: CASE EVENT DATE: 20140716
